FAERS Safety Report 13355425 (Version 3)
Quarter: 2017Q4

REPORT INFORMATION
  Report Type: Spontaneous
  Country: US (occurrence: US)
  Receive Date: 20170321
  Receipt Date: 20171215
  Transmission Date: 20180320
  Serious: No
  Sender: FDA-Public Use
  Company Number: US-LUNDBECK-DKLU2027412

PATIENT
  Age: 83 Year
  Sex: Male

DRUGS (7)
  1. NORTHERA [Suspect]
     Active Substance: DROXIDOPA
     Indication: PRODUCT USED FOR UNKNOWN INDICATION
     Dosage: SCHEDULE B, TITRATING
     Route: 065
     Dates: start: 20170216
  2. NORTHERA [Suspect]
     Active Substance: DROXIDOPA
     Route: 065
  3. MIDODRINE [Suspect]
     Active Substance: MIDODRINE
     Route: 065
  4. NORTHERA [Suspect]
     Active Substance: DROXIDOPA
     Dosage: SCHEDULE B WITH TITRATION COMPLETE
     Route: 065
  5. MIDODRINE [Suspect]
     Active Substance: MIDODRINE
     Indication: PRODUCT USED FOR UNKNOWN INDICATION
     Route: 065
  6. NORTHERA [Suspect]
     Active Substance: DROXIDOPA
     Route: 065
     Dates: start: 20160224
  7. POTASSIUM [Concomitant]
     Active Substance: POTASSIUM
     Indication: PRODUCT USED FOR UNKNOWN INDICATION
     Route: 065

REACTIONS (8)
  - Presyncope [Unknown]
  - Hypertension [Unknown]
  - Urinary incontinence [Unknown]
  - Syncope [Unknown]
  - Orthostatic hypotension [Unknown]
  - Chest pain [Unknown]
  - Blood pressure fluctuation [Unknown]
  - Dizziness [Unknown]

NARRATIVE: CASE EVENT DATE: 20170224
